FAERS Safety Report 9646572 (Version 1)
Quarter: 2013Q4

REPORT INFORMATION
  Report Type: Spontaneous
  Country: BR (occurrence: BR)
  Receive Date: 20131025
  Receipt Date: 20131025
  Transmission Date: 20140711
  Serious: Yes (Other)
  Sender: FDA-Public Use
  Company Number: BR-ASTRAZENECA-2013SE77725

PATIENT
  Age: 607 Month
  Sex: Male
  Weight: 90 kg

DRUGS (4)
  1. SELOZOK [Suspect]
     Indication: HYPERTENSION
     Route: 048
     Dates: start: 2010
  2. CRESTOR [Suspect]
     Indication: CORONARY ARTERY OCCLUSION
     Route: 048
     Dates: start: 201304, end: 201305
  3. CRESTOR [Suspect]
     Indication: CORONARY ARTERY OCCLUSION
     Route: 048
     Dates: start: 201305
  4. ASPIRINA PREVENT [Concomitant]
     Indication: CORONARY ARTERY OCCLUSION
     Dates: start: 201304

REACTIONS (2)
  - Coronary artery stenosis [Unknown]
  - Blood cholesterol decreased [Unknown]
